FAERS Safety Report 5187696-4 (Version None)
Quarter: 2006Q4

REPORT INFORMATION
  Report Type: 
  Country: None (occurrence: None)
  Receive Date: 20061221
  Receipt Date: 20060904
  Transmission Date: 20070319
  Serious: Yes (Disabling, Other)
  Sender: FDA-Public Use
  Company Number: PHBS2006CH13570

PATIENT
  Age: 66 Year
  Sex: Female

DRUGS (1)
  1. MIOCHOL-E [Suspect]
     Indication: MIOSIS
     Route: 031
     Dates: start: 20060622

REACTIONS (3)
  - CORNEAL OPACITY [None]
  - IRIS ADHESIONS [None]
  - PUPILLARY DISORDER [None]
